FAERS Safety Report 9237275 (Version 1)
Quarter: 2013Q2

REPORT INFORMATION
  Report Type: Spontaneous
  Country: US (occurrence: US)
  Receive Date: 20130417
  Receipt Date: 20130417
  Transmission Date: 20140414
  Serious: No
  Sender: FDA-Public Use
  Company Number: US-B.I. PHARMACEUTICALS,INC./RIDGEFIELD-2013-BI-09385BP

PATIENT
  Sex: Female

DRUGS (1)
  1. SPIRIVA [Suspect]
     Route: 055

REACTIONS (5)
  - Increased upper airway secretion [Unknown]
  - Oropharyngeal pain [Unknown]
  - Sinus operation [Unknown]
  - Poisoning [Unknown]
  - Product quality issue [Unknown]
